FAERS Safety Report 6796384-X (Version None)
Quarter: 2010Q2

REPORT INFORMATION
  Report Type: 
  Country: None (occurrence: None)
  Receive Date: 20100622
  Receipt Date: 20100614
  Transmission Date: 20101027
  Serious: Yes (Life-Threatening, Hospitalization)
  Sender: FDA-Public Use
  Company Number: GER/GER/10/0013605

PATIENT
  Age: 79 Year
  Sex: Female
  Weight: 69 kg

DRUGS (9)
  1. SIMVASTATIN [Suspect]
     Indication: HYPERLIPIDAEMIA
     Dosage: 20 MG, 1 IN 1 D, ORAL
     Route: 048
     Dates: start: 20000101
  2. RAMIPRIL [Suspect]
     Indication: HYPERTENSION
     Dosage: 10 MG, 1 IN 1 D, ORAL
     Route: 048
     Dates: start: 20000101
  3. ALDACTONE [Suspect]
     Indication: RENAL FAILURE CHRONIC
     Dosage: 50 MG, 1 IN 1 D, ORAL
     Route: 048
     Dates: start: 20081001, end: 20081208
  4. FALITHROM (PHENPROCOUMON) [Suspect]
     Indication: ATRIAL FIBRILLATION
     Dosage: 3 MG, 1 IN 1 D, ORAL
     Route: 048
     Dates: start: 20080401
  5. ALLOPURINOL [Suspect]
     Indication: HYPERURICAEMIA
     Dosage: 150 MG, 1 IN 1 D, ORAL
     Route: 048
     Dates: start: 20000101
  6. NORVASC [Concomitant]
  7. JURNISTA (HYDROMORPHONE HYDROCHLORIDE) [Concomitant]
  8. METOPROLOL SUCCINATE [Concomitant]
  9. LACTULOSE [Concomitant]

REACTIONS (5)
  - COAGULOPATHY [None]
  - CONFUSIONAL STATE [None]
  - DYSPNOEA EXERTIONAL [None]
  - HYPERKALAEMIA [None]
  - OEDEMA PERIPHERAL [None]
